FAERS Safety Report 24151358 (Version 2)
Quarter: 2024Q3

REPORT INFORMATION
  Report Type: Spontaneous
  Country: FR (occurrence: FR)
  Receive Date: 20240730
  Receipt Date: 20240828
  Transmission Date: 20241017
  Serious: Yes (Other)
  Sender: ACCORD
  Company Number: None

PATIENT
  Age: 43 Year
  Sex: Female
  Weight: 90 kg

DRUGS (2)
  1. QUETIAPINE FUMARATE [Suspect]
     Active Substance: QUETIAPINE FUMARATE
     Indication: Sleep disorder
     Dosage: STRENGTH: 50MG, 1 TABLET OF 50 MG IN THE EVENING
     Dates: start: 20230904, end: 20240107
  2. PAROXETINE [Concomitant]
     Active Substance: PAROXETINE
     Dosage: STRENGTH: 20MG,  SCORED FILM-COATED TABLET

REACTIONS (4)
  - Thyroid disorder [Recovering/Resolving]
  - Abnormal weight gain [Recovering/Resolving]
  - Somnolence [Recovering/Resolving]
  - Endometriosis [Not Recovered/Not Resolved]

NARRATIVE: CASE EVENT DATE: 20230901
